FAERS Safety Report 5306965-8 (Version None)
Quarter: 2007Q2

REPORT INFORMATION
  Report Type: 
  Country: None (occurrence: None)
  Receive Date: 20070419
  Receipt Date: 20070406
  Transmission Date: 20071010
  Serious: Yes (Hospitalization, Disabling)
  Sender: FDA-Public Use
  Company Number: SUS1-2006-00162

PATIENT
  Age: 41 Year
  Sex: Female

DRUGS (2)
  1. PENTASA [Suspect]
     Indication: CROHN'S DISEASE
     Dates: end: 20060101
  2. BALSALAZIDE DISODIUM [Suspect]
     Indication: CROHN'S DISEASE
     Dosage: 750 MG DAILY, ORAL
     Route: 048
     Dates: end: 20060101

REACTIONS (5)
  - HYPERSENSITIVITY [None]
  - LIP PAIN [None]
  - PANCREATITIS ACUTE [None]
  - RASH [None]
  - SWELLING FACE [None]
